FAERS Safety Report 21805153 (Version 2)
Quarter: 2023Q1

REPORT INFORMATION
  Report Type: Spontaneous
  Country: LB (occurrence: None)
  Receive Date: 20230102
  Receipt Date: 20230104
  Transmission Date: 20230417
  Serious: Yes (Other)
  Sender: FDA-Public Use
  Company Number: LB-ROCHE-3253987

PATIENT
  Age: 71 Year
  Sex: Male
  Weight: 83 kg

DRUGS (10)
  1. RITUXIMAB [Suspect]
     Active Substance: RITUXIMAB
     Indication: Diffuse large B-cell lymphoma
     Dosage: GIVEN ON DAY 1 OF EACH CYCLE (DAY 1 ONLY FOR CYCLE 3)
     Route: 041
     Dates: start: 20220519, end: 20220831
  2. RITUXIMAB [Suspect]
     Active Substance: RITUXIMAB
     Dosage: GIVEN ON DAY 1 OF EACH CYCLE (DAY 1 ONLY FOR CYCLE 3)
     Route: 041
     Dates: start: 20221224, end: 20230101
  3. CYCLOPHOSPHAMIDE [Suspect]
     Active Substance: CYCLOPHOSPHAMIDE
     Indication: Diffuse large B-cell lymphoma
     Route: 065
     Dates: start: 20220519, end: 20220831
  4. DOXORUBICIN [Suspect]
     Active Substance: DOXORUBICIN
     Indication: Diffuse large B-cell lymphoma
     Route: 065
     Dates: start: 20220519, end: 20220831
  5. VINCRISTINE [Suspect]
     Active Substance: VINCRISTINE
     Indication: Diffuse large B-cell lymphoma
     Route: 065
     Dates: start: 20220519, end: 20220831
  6. IFOSFAMIDE [Suspect]
     Active Substance: IFOSFAMIDE
     Indication: Diffuse large B-cell lymphoma
     Dosage: ON DAY 2
     Route: 042
     Dates: start: 20221224, end: 20230101
  7. ETOPOSIDE [Suspect]
     Active Substance: ETOPOSIDE
     Indication: Diffuse large B-cell lymphoma
     Dosage: GIVEN ON DAYS 1, 2, 3
     Route: 042
     Dates: start: 20221224, end: 20230101
  8. CARBOPLATIN [Suspect]
     Active Substance: CARBOPLATIN
     Indication: Diffuse large B-cell lymphoma
     Dosage: GIVEN ON DAY 2 ONLY.
     Route: 042
     Dates: start: 20221224, end: 20230101
  9. PREDNISONE [Suspect]
     Active Substance: PREDNISONE
     Indication: Diffuse large B-cell lymphoma
     Dosage: ADMINISTERED ON DAY 1-5
     Route: 048
     Dates: start: 20220519, end: 20220831
  10. ENTECAVIR [Concomitant]
     Active Substance: ENTECAVIR
     Indication: Chronic hepatitis B

REACTIONS (11)
  - Disease progression [Unknown]
  - Haemoglobin decreased [Unknown]
  - Haematocrit decreased [Unknown]
  - Red cell distribution width increased [Unknown]
  - Neutrophil count increased [Unknown]
  - Lymphocyte count decreased [Unknown]
  - Monocyte count increased [Unknown]
  - Red blood cell nucleated morphology present [Unknown]
  - Blood urea decreased [Unknown]
  - Carbon dioxide decreased [Unknown]
  - Red blood cell count decreased [Unknown]
